FAERS Safety Report 11615824 (Version 1)
Quarter: 2015Q4

REPORT INFORMATION
  Report Type: Spontaneous
  Country: US (occurrence: None)
  Receive Date: 20151008
  Receipt Date: 20151008
  Transmission Date: 20160304
  Serious: Yes (Disabling, Other)
  Sender: FDA-Public Use
  Company Number: None

PATIENT
  Sex: Female

DRUGS (11)
  1. ARIPRAZOLE [Suspect]
     Active Substance: ARIPIPRAZOLE
     Indication: DEPRESSION
     Dates: start: 20150804, end: 20150814
  2. ARIPRAZOLE [Suspect]
     Active Substance: ARIPIPRAZOLE
     Indication: AGORAPHOBIA
     Dates: start: 20150804, end: 20150814
  3. ARIPIPRAZOLE. [Concomitant]
     Active Substance: ARIPIPRAZOLE
  4. LOSARTAN. [Concomitant]
     Active Substance: LOSARTAN
  5. SIMVASTATIN. [Concomitant]
     Active Substance: SIMVASTATIN
  6. TRICONAZOLE [Concomitant]
  7. VENLAFAXINE [Concomitant]
     Active Substance: VENLAFAXINE HYDROCHLORIDE
  8. ARIPRAZOLE [Suspect]
     Active Substance: ARIPIPRAZOLE
     Indication: ANXIETY
     Dates: start: 20150804, end: 20150814
  9. GLIPTILIDEM [Concomitant]
  10. LEXAPRO [Concomitant]
     Active Substance: ESCITALOPRAM OXALATE
  11. ZOLPIDEM [Concomitant]
     Active Substance: ZOLPIDEM\ZOLPIDEM TARTRATE

REACTIONS (6)
  - Abdominal pain [None]
  - Nausea [None]
  - Pyrexia [None]
  - Dizziness [None]
  - Peripheral swelling [None]
  - Feeling abnormal [None]
